FAERS Safety Report 13794959 (Version 2)
Quarter: 2019Q2

REPORT INFORMATION
  Report Type: Spontaneous
  Country: US (occurrence: US)
  Receive Date: 20170726
  Receipt Date: 20190416
  Transmission Date: 20190711
  Serious: Yes (Other)
  Sender: FDA-Public Use
  Company Number: US-SUN PHARMACEUTICAL INDUSTRIES LTD-2017US-146136

PATIENT
  Age: 29 Year
  Sex: Male

DRUGS (2)
  1. TRENBOLONE [Suspect]
     Active Substance: TRENBOLONE
     Indication: RASH
     Dosage: SUBCUTANEOUS INJECTIONS OF 1.5 CC
     Route: 058
  2. TESTOSTERONE. [Suspect]
     Active Substance: TESTOSTERONE
     Indication: RASH
     Dosage: SUBCUTANEOUS INJECTIONS OF 2 CC
     Route: 058

REACTIONS (1)
  - Acne conglobata [Recovering/Resolving]
